FAERS Safety Report 7734484-8 (Version None)
Quarter: 2011Q3

REPORT INFORMATION
  Report Type: 
  Country: None (occurrence: None)
  Receive Date: 20110907
  Receipt Date: 20110826
  Transmission Date: 20111222
  Serious: Yes (Hospitalization)
  Sender: FDA-Public Use
  Company Number: US-GLAXOSMITHKLINE-A0802274A

PATIENT
  Age: 73 Year
  Sex: Male
  Weight: 102.3 kg

DRUGS (14)
  1. RANITIDINE [Concomitant]
  2. METOPROLOL [Concomitant]
  3. ALLOPURINOL [Concomitant]
  4. PLAVIX [Concomitant]
  5. VASOTEC [Concomitant]
  6. AVANDIA [Suspect]
     Indication: DIABETES MELLITUS
     Dosage: 8MG PER DAY
     Route: 048
     Dates: start: 20000101, end: 20080411
  7. LASIX [Concomitant]
  8. COLCHICINE [Concomitant]
  9. GLYBURIDE [Concomitant]
  10. ASPIRIN [Concomitant]
  11. NORVASC [Concomitant]
  12. LANOXIN [Concomitant]
  13. LOVASTATIN [Concomitant]
  14. COUMADIN [Concomitant]

REACTIONS (14)
  - MITRAL VALVE INCOMPETENCE [None]
  - MYOCARDIAL INFARCTION [None]
  - MULTIPLE INJURIES [None]
  - ATRIAL FLUTTER [None]
  - CARDIOMYOPATHY [None]
  - CARDIAC ARREST [None]
  - CORONARY ARTERY STENOSIS [None]
  - TRICUSPID VALVE INCOMPETENCE [None]
  - CARDIAC FAILURE CONGESTIVE [None]
  - PULMONARY HYPERTENSION [None]
  - INTERSTITIAL LUNG DISEASE [None]
  - ATRIAL FIBRILLATION [None]
  - ECONOMIC PROBLEM [None]
  - AORTIC VALVE DISEASE [None]
